FAERS Safety Report 6835001-7 (Version None)
Quarter: 2010Q3

REPORT INFORMATION
  Report Type: 
  Country: None (occurrence: None)
  Receive Date: 20100713
  Receipt Date: 20100604
  Transmission Date: 20110219
  Serious: No
  Sender: FDA-Public Use
  Company Number: US-BIOGENIDEC-2010BI018507

PATIENT
  Sex: Female
  Weight: 99 kg

DRUGS (2)
  1. AVONEX [Suspect]
     Indication: MULTIPLE SCLEROSIS
     Route: 030
     Dates: start: 20090410, end: 20100111
  2. AVONEX [Suspect]
     Route: 030
     Dates: start: 20100422

REACTIONS (7)
  - ADVERSE DRUG REACTION [None]
  - AGEUSIA [None]
  - DYSPHAGIA [None]
  - GAIT DISTURBANCE [None]
  - GALLBLADDER DISORDER [None]
  - PAIN IN EXTREMITY [None]
  - TUBERCULOSIS [None]
